FAERS Safety Report 9031198 (Version 1)
Quarter: 2013Q1

REPORT INFORMATION
  Report Type: Spontaneous
  Country: US (occurrence: US)
  Receive Date: 20130123
  Receipt Date: 20130123
  Transmission Date: 20140127
  Serious: Yes (Hospitalization, Other)
  Sender: FDA-Public Use
  Company Number: CHPA2013US001412

PATIENT
  Sex: Female

DRUGS (6)
  1. CONTROL PLP [Suspect]
     Indication: SMOKING CESSATION THERAPY
     Dosage: 21 MG, QD
     Route: 062
  2. CONTROL PLP [Suspect]
     Dosage: 14 MG, UNK
     Route: 062
     Dates: start: 1992, end: 1992
  3. CONTROL PLP [Suspect]
     Dosage: 21 MG, QD
     Route: 062
     Dates: start: 1992, end: 1992
  4. BABY ASPIRIN [Concomitant]
     Dosage: 81 MG, UNK
     Route: 048
  5. MORPHINE [Concomitant]
     Indication: PAIN
     Dosage: 1-4 UNK, A DAY
     Route: 048
  6. PREDNISONE [Concomitant]
     Dosage: UNK, UNK
     Dates: start: 2012, end: 2012

REACTIONS (11)
  - Coma [Recovered/Resolved]
  - Pneumonia [Recovered/Resolved]
  - Chronic obstructive pulmonary disease [Not Recovered/Not Resolved]
  - Bronchitis chronic [Not Recovered/Not Resolved]
  - Fungal infection [Not Recovered/Not Resolved]
  - Increased upper airway secretion [Not Recovered/Not Resolved]
  - Bacterial infection [Not Recovered/Not Resolved]
  - Haemoptysis [Recovered/Resolved]
  - Irritability [Recovered/Resolved]
  - Cough [Not Recovered/Not Resolved]
  - Incorrect drug administration duration [Unknown]
